FAERS Safety Report 9212993 (Version 1)
Quarter: 2013Q2

REPORT INFORMATION
  Report Type: Spontaneous
  Country: PH (occurrence: PH)
  Receive Date: 20130405
  Receipt Date: 20130405
  Transmission Date: 20140414
  Serious: Yes (Other)
  Sender: FDA-Public Use
  Company Number: PH-009507513-1304PHL001459

PATIENT
  Age: 62 Year
  Sex: Male

DRUGS (1)
  1. COZAAR [Suspect]
     Dosage: 1 DF, QD
     Dates: end: 201301

REACTIONS (2)
  - Cerebrovascular accident [Unknown]
  - Blood pressure inadequately controlled [Recovered/Resolved]
